FAERS Safety Report 18695637 (Version 1)
Quarter: 2021Q1

REPORT INFORMATION
  Report Type: Spontaneous
  Country: FR (occurrence: FR)
  Receive Date: 20210104
  Receipt Date: 20210104
  Transmission Date: 20210419
  Serious: Yes (Hospitalization)
  Sender: FDA-Public Use
  Company Number: FR-ROCHE-2740469

PATIENT
  Sex: Male

DRUGS (8)
  1. RIBAVIRIN. [Suspect]
     Active Substance: RIBAVIRIN
     Dosage: UNK
     Route: 048
     Dates: start: 20180701
  2. RIBAVIRIN. [Suspect]
     Active Substance: RIBAVIRIN
     Indication: HEPATITIS C
     Dosage: UNK
     Route: 048
     Dates: start: 20180522, end: 20180701
  3. OLYSIO [Concomitant]
     Active Substance: SIMEPREVIR
     Indication: HEPATITIS C
     Dosage: UNK
     Dates: start: 20141114, end: 20150213
  4. SOVALDI [Concomitant]
     Active Substance: SOFOSBUVIR
     Dosage: UNK
     Dates: start: 20141114, end: 20150213
  5. REBETOL [Suspect]
     Active Substance: RIBAVIRIN
     Indication: HEPATITIS C
     Dosage: UNK
     Route: 048
     Dates: start: 2008, end: 200812
  6. PEGASYS [Concomitant]
     Active Substance: PEGINTERFERON ALFA-2A
     Indication: HEPATITIS C
     Dosage: UNK
     Route: 065
     Dates: start: 2008, end: 200812
  7. REBETOL [Suspect]
     Active Substance: RIBAVIRIN
     Dosage: UNK
     Route: 048
     Dates: start: 19990520, end: 19991210
  8. INTERFERON ALFA?2B [Suspect]
     Active Substance: INTERFERON ALFA-2B
     Indication: HEPATITIS C
     Dosage: UNK
     Route: 065
     Dates: start: 19990520, end: 19991210

REACTIONS (6)
  - Myocardial ischaemia [Unknown]
  - Sepsis [Unknown]
  - Lung disorder [Unknown]
  - Anaemia [Unknown]
  - Clostridium colitis [Unknown]
  - Dysentery [Recovering/Resolving]

NARRATIVE: CASE EVENT DATE: 201803
